FAERS Safety Report 25188978 (Version 1)
Quarter: 2025Q2

REPORT INFORMATION
  Report Type: Spontaneous
  Country: US (occurrence: US)
  Receive Date: 20250411
  Receipt Date: 20250411
  Transmission Date: 20250716
  Serious: Yes (Hospitalization)
  Sender: MYLAN
  Company Number: US-MYLANLABS-2025M1030939

PATIENT
  Age: 49 Year
  Sex: Female

DRUGS (28)
  1. FENTANYL [Suspect]
     Active Substance: FENTANYL
     Indication: Sedative therapy
     Route: 065
  2. FENTANYL [Suspect]
     Active Substance: FENTANYL
     Indication: Paroxysmal autonomic instability with dystonia
  3. FENTANYL [Suspect]
     Active Substance: FENTANYL
  4. FENTANYL [Suspect]
     Active Substance: FENTANYL
     Route: 065
  5. FENTANYL [Suspect]
     Active Substance: FENTANYL
     Route: 065
  6. FENTANYL [Suspect]
     Active Substance: FENTANYL
  7. FENTANYL [Suspect]
     Active Substance: FENTANYL
  8. FENTANYL [Suspect]
     Active Substance: FENTANYL
     Route: 065
  9. PROPOFOL [Suspect]
     Active Substance: PROPOFOL
     Indication: Sedative therapy
     Route: 065
  10. PROPOFOL [Suspect]
     Active Substance: PROPOFOL
     Indication: Paroxysmal autonomic instability with dystonia
  11. PROPOFOL [Suspect]
     Active Substance: PROPOFOL
  12. PROPOFOL [Suspect]
     Active Substance: PROPOFOL
     Route: 065
  13. PROPOFOL [Suspect]
     Active Substance: PROPOFOL
     Route: 065
  14. PROPOFOL [Suspect]
     Active Substance: PROPOFOL
  15. PROPOFOL [Suspect]
     Active Substance: PROPOFOL
  16. PROPOFOL [Suspect]
     Active Substance: PROPOFOL
     Route: 065
  17. PROPOFOL [Suspect]
     Active Substance: PROPOFOL
     Route: 065
  18. PROPOFOL [Suspect]
     Active Substance: PROPOFOL
     Route: 065
  19. PROPOFOL [Suspect]
     Active Substance: PROPOFOL
  20. PROPOFOL [Suspect]
     Active Substance: PROPOFOL
  21. DEXMEDETOMIDINE [Concomitant]
     Active Substance: DEXMEDETOMIDINE
     Indication: Sedative therapy
     Route: 065
  22. DEXMEDETOMIDINE [Concomitant]
     Active Substance: DEXMEDETOMIDINE
     Indication: Paroxysmal autonomic instability with dystonia
  23. DEXMEDETOMIDINE [Concomitant]
     Active Substance: DEXMEDETOMIDINE
  24. DEXMEDETOMIDINE [Concomitant]
     Active Substance: DEXMEDETOMIDINE
     Route: 065
  25. DEXMEDETOMIDINE [Concomitant]
     Active Substance: DEXMEDETOMIDINE
     Route: 065
  26. DEXMEDETOMIDINE [Concomitant]
     Active Substance: DEXMEDETOMIDINE
  27. DEXMEDETOMIDINE [Concomitant]
     Active Substance: DEXMEDETOMIDINE
  28. DEXMEDETOMIDINE [Concomitant]
     Active Substance: DEXMEDETOMIDINE
     Route: 065

REACTIONS (2)
  - Rebound effect [Recovered/Resolved]
  - Paroxysmal autonomic instability with dystonia [Recovered/Resolved]
